FAERS Safety Report 9435432 (Version 2)
Quarter: 2014Q1

REPORT INFORMATION
  Report Type: Spontaneous
  Country: US (occurrence: US)
  Receive Date: 20130801
  Receipt Date: 20140131
  Transmission Date: 20141002
  Serious: Yes (Other)
  Sender: FDA-Public Use
  Company Number: US-BAYER-2013-093239

PATIENT
  Age: 30 Year
  Sex: Female
  Weight: 71.66 kg

DRUGS (1)
  1. MIRENA [Suspect]
     Indication: CONTRACEPTION
     Dosage: 20 MCG/24HR, CONT
     Route: 015
     Dates: start: 20091231, end: 201302

REACTIONS (9)
  - Device dislocation [None]
  - Menorrhagia [None]
  - Genital haemorrhage [None]
  - Abdominal pain upper [None]
  - Injury [None]
  - Scar [None]
  - Depression [None]
  - Anxiety [None]
  - Loss of libido [None]
